FAERS Safety Report 7026607-3 (Version None)
Quarter: 2010Q4

REPORT INFORMATION
  Report Type: 
  Country: None (occurrence: None)
  Receive Date: 20101004
  Receipt Date: 20100922
  Transmission Date: 20110411
  Serious: Yes (Other)
  Sender: FDA-Public Use
  Company Number: BR-NOVOPROD-315374

PATIENT
  Age: 43 Year
  Sex: Female
  Weight: 63 kg

DRUGS (5)
  1. NORDITROPIN NORDIFLEX [Suspect]
     Indication: MUSCLE DISORDER
     Dosage: 0.2 MG, QD
     Route: 058
     Dates: start: 20100922, end: 20100922
  2. NORDITROPIN NORDIFLEX [Suspect]
     Indication: OFF LABEL USE
  3. DEXAMETHASONE [Concomitant]
     Indication: ADRENOGENITAL SYNDROME
     Dosage: 4 ML, QD
     Route: 048
     Dates: start: 19730101
  4. LEVOTHYROXINE SODIUM [Concomitant]
     Indication: HYPOTHYROIDISM
     Dosage: 50 MG, QD
     Route: 048
     Dates: start: 20100301
  5. SIMVASTATIN [Concomitant]
     Indication: HYPERCHOLESTEROLAEMIA
     Dosage: 10 MG, QD
     Route: 048
     Dates: start: 20100301

REACTIONS (5)
  - ASTHENIA [None]
  - DIZZINESS [None]
  - HEADACHE [None]
  - NAUSEA [None]
  - SYNCOPE [None]
